FAERS Safety Report 20885110 (Version 1)
Quarter: 2022Q2

REPORT INFORMATION
  Report Type: Spontaneous
  Country: US (occurrence: None)
  Receive Date: 20220527
  Receipt Date: 20220527
  Transmission Date: 20220721
  Serious: Yes (Hospitalization, Other)
  Sender: FDA-Public Use
  Company Number: None

PATIENT
  Age: 58 Year
  Sex: Male
  Weight: 107.7 kg

DRUGS (1)
  1. NIRMATRELVIR\RITONAVIR [Suspect]
     Active Substance: NIRMATRELVIR\RITONAVIR
     Indication: COVID-19
     Dates: start: 20220517, end: 20220521

REACTIONS (5)
  - Nausea [None]
  - Asthenia [None]
  - Drug interaction [None]
  - Acute kidney injury [None]
  - Toxicity to various agents [None]

NARRATIVE: CASE EVENT DATE: 20220521
